FAERS Safety Report 12945105 (Version 3)
Quarter: 2018Q1

REPORT INFORMATION
  Report Type: Report from Study
  Country: US (occurrence: US)
  Receive Date: 20161115
  Receipt Date: 20180212
  Transmission Date: 20180508
  Serious: Yes (Other)
  Sender: FDA-Public Use
  Company Number: US-MALLINCKRODT-T201605688

PATIENT
  Age: 74 Year
  Sex: Female

DRUGS (3)
  1. REPOSITORY CORTICOTROPIN INJECTION [Suspect]
     Active Substance: CORTICOTROPIN
     Dosage: 40 UNITS / .5 ML, 2 TIMES PER WEEK (TUESDAY/THURSDAY/SATURDAY)
     Route: 058
     Dates: end: 20170528
  2. REPOSITORY CORTICOTROPIN INJECTION [Suspect]
     Active Substance: CORTICOTROPIN
     Indication: PROTEINURIA
     Dosage: 80 UNITS / 1ML, TWICE WEEKLY (SUNDAY + THURSDAY)
     Route: 058
     Dates: start: 20160623
  3. REPOSITORY CORTICOTROPIN INJECTION [Suspect]
     Active Substance: CORTICOTROPIN
     Indication: NEPHROTIC SYNDROME
     Dosage: 80 UNTIS TWICE WEEKLY (SUNDAY AND THURSDAY)
     Route: 058
     Dates: start: 20160728

REACTIONS (8)
  - Cataract [Not Recovered/Not Resolved]
  - Oedema peripheral [Not Recovered/Not Resolved]
  - Diabetes mellitus [Not Recovered/Not Resolved]
  - Injection site pain [Not Recovered/Not Resolved]
  - Blindness [Recovering/Resolving]
  - Protein total abnormal [Not Recovered/Not Resolved]
  - Pneumaturia [Unknown]
  - Polyp [Recovering/Resolving]

NARRATIVE: CASE EVENT DATE: 20160623
